FAERS Safety Report 5682747-2 (Version None)
Quarter: 2008Q1

REPORT INFORMATION
  Report Type: 
  Country: None (occurrence: None)
  Receive Date: 20080326
  Receipt Date: 20080326
  Transmission Date: 20080703
  Serious: Yes (Hospitalization)
  Sender: FDA-Public Use
  Company Number: None

PATIENT
  Sex: Female
  Weight: 42 kg

DRUGS (7)
  1. DASATINIB (BRISTOL-MYERS SQUIBB) [Suspect]
     Indication: GLIOBLASTOMA MULTIFORME
     Dosage: 100MG PO DAILY; HAD NOT YET STARTED
     Route: 048
  2. ERLOTINIB (GENENTECH/OSIP) [Suspect]
     Indication: GLIOBLASTOMA MULTIFORME
     Dosage: 150MG PO DAILY; HAD NOT YET STARTED
     Route: 048
  3. VALTREX [Concomitant]
  4. POTASSIUM CHLORIDE [Concomitant]
  5. KEPPRA [Concomitant]
  6. DEXAMETHASONE TAB [Concomitant]
  7. LEXAPRO [Concomitant]

REACTIONS (1)
  - NO ADVERSE EVENT [None]
